FAERS Safety Report 17745345 (Version 1)
Quarter: 2020Q2

REPORT INFORMATION
  Report Type: Spontaneous
  Country: DE (occurrence: DE)
  Receive Date: 20200504
  Receipt Date: 20200504
  Transmission Date: 20200714
  Serious: Yes (Life-Threatening, Hospitalization)
  Sender: FDA-Public Use
  Company Number: DE-HETERO-HET2020DE00486

PATIENT
  Age: 27 Month
  Sex: Female
  Weight: 11 kg

DRUGS (2)
  1. LEVETIRACETAM. [Suspect]
     Active Substance: LEVETIRACETAM
     Indication: EPILEPSY
     Dosage: 400 MG, QD (EVERY DAYS 2 SEPARATED DOSES)
     Route: 048
  2. PYRIDOXIN [Concomitant]
     Active Substance: PYRIDOXINE
     Indication: VITAMIN B6 DEFICIENCY
     Dosage: 540 MG, QD (EVERY DAYS 6 SEPARATED DOSES)
     Route: 048

REACTIONS (4)
  - Fluid intake reduced [Recovered/Resolved]
  - Pyrexia [Recovered/Resolved]
  - Cough [Recovered/Resolved]
  - Pneumonia [Recovered/Resolved]

NARRATIVE: CASE EVENT DATE: 2020
